FAERS Safety Report 9836807 (Version 2)
Quarter: 2014Q1

REPORT INFORMATION
  Report Type: Spontaneous
  Country: US (occurrence: None)
  Receive Date: 20131127
  Receipt Date: 20140228
  Transmission Date: 20141002
  Serious: Yes (Other)
  Sender: FDA-Public Use
  Company Number: 224243

PATIENT
  Age: 55 Year
  Sex: Female

DRUGS (1)
  1. PICATO [Suspect]
     Indication: ACTINIC KERATOSIS
     Dosage: (1 IN 1 D), TOPICAL
     Route: 061
     Dates: start: 20131004, end: 20131006

REACTIONS (11)
  - Application site erythema [None]
  - Application site vesicles [None]
  - Application site dryness [None]
  - Application site exfoliation [None]
  - Application site pruritus [None]
  - Application site warmth [None]
  - Application site swelling [None]
  - Application site scab [None]
  - Erythema [None]
  - Swelling [None]
  - Otorrhoea [None]
